FAERS Safety Report 11618596 (Version 2)
Quarter: 2016Q3

REPORT INFORMATION
  Report Type: Spontaneous
  Country: BR (occurrence: BR)
  Receive Date: 20151012
  Receipt Date: 20160728
  Transmission Date: 20161109
  Serious: Yes (Hospitalization)
  Sender: FDA-Public Use
  Company Number: BR-ROCHE-1644004

PATIENT
  Age: 45 Year
  Sex: Female

DRUGS (4)
  1. CARBOPLATIN. [Suspect]
     Active Substance: CARBOPLATIN
     Indication: PRODUCT USED FOR UNKNOWN INDICATION
     Dosage: DOSE RECEIVED: 14/MAR/2014, SEP/2015 AND FEB/2016 (6TH CYCLE)
     Route: 065
     Dates: start: 20131108
  2. AVASTIN [Suspect]
     Active Substance: BEVACIZUMAB
     Indication: OVARIAN CANCER
     Dosage: DOSE RECEIVED: 14/MAR/2014, FROM 04/APR/2014 TO 25/APR/2014, DEC/2014, SEP/2015 AND FEB/2016 (6TH CY
     Route: 065
     Dates: start: 20131129
  3. GEMZAR [Suspect]
     Active Substance: GEMCITABINE HYDROCHLORIDE
     Indication: PRODUCT USED FOR UNKNOWN INDICATION
     Route: 065
     Dates: start: 201602
  4. TAXOL [Suspect]
     Active Substance: PACLITAXEL
     Indication: PRODUCT USED FOR UNKNOWN INDICATION
     Route: 065
     Dates: start: 20131108

REACTIONS (6)
  - Metastases to pancreas [Unknown]
  - Metastases to stomach [Unknown]
  - Metastases to liver [Unknown]
  - Metastases to spleen [Unknown]
  - Carbohydrate antigen 125 increased [Unknown]
  - Incisional hernia [Unknown]

NARRATIVE: CASE EVENT DATE: 201507
